FAERS Safety Report 11491029 (Version 1)
Quarter: 2015Q3

REPORT INFORMATION
  Report Type: Spontaneous
  Country: US (occurrence: US)
  Receive Date: 20150910
  Receipt Date: 20150910
  Transmission Date: 20151125
  Serious: No
  Sender: FDA-Public Use
  Company Number: US-JNJFOC-20150800200

PATIENT
  Sex: Female

DRUGS (1)
  1. GOLIMUMAB [Suspect]
     Active Substance: GOLIMUMAB
     Indication: PRODUCT USED FOR UNKNOWN INDICATION
     Dosage: ?FATHER?S DOSING?
     Route: 064

REACTIONS (2)
  - Foetal exposure during pregnancy [Unknown]
  - Gastric disorder [Unknown]
